FAERS Safety Report 6629967-8 (Version None)
Quarter: 2010Q1

REPORT INFORMATION
  Report Type: 
  Country: None (occurrence: None)
  Receive Date: 20100310
  Receipt Date: 20100310
  Transmission Date: 20100710
  Serious: Yes (Hospitalization)
  Sender: FDA-Public Use
  Company Number: None

PATIENT
  Age: 4 Year
  Sex: Male
  Weight: 15.8759 kg

DRUGS (1)
  1. CHILDRENS COUGH + BRONCHIAL / 8 OZ SYRUP [Suspect]
     Dosage: 1 TEASPOON ORALLY X 1 DOSE
     Route: 048
     Dates: start: 20100118, end: 20100118

REACTIONS (4)
  - EYE SWELLING [None]
  - OXYGEN SATURATION DECREASED [None]
  - SWELLING FACE [None]
  - SWOLLEN TONGUE [None]
